FAERS Safety Report 17436532 (Version 2)
Quarter: 2020Q2

REPORT INFORMATION
  Report Type: Spontaneous
  Country: US (occurrence: US)
  Receive Date: 20200219
  Receipt Date: 20200407
  Transmission Date: 20200713
  Serious: Yes (Hospitalization)
  Sender: FDA-Public Use
  Company Number: US-ASTRAZENECA-2020SE21805

PATIENT
  Age: 32298 Day
  Sex: Male
  Weight: 68 kg

DRUGS (1)
  1. SYMBICORT [Suspect]
     Active Substance: BUDESONIDE\FORMOTEROL FUMARATE DIHYDRATE
     Dosage: 160/4.5 MCG,1 PUFF, BID, SOMETIMES 2 PUFFS BID, DEPENDS ON HIS WHEEZING
     Route: 055

REACTIONS (12)
  - Wheezing [Unknown]
  - Feeling abnormal [Not Recovered/Not Resolved]
  - Renal disorder [Not Recovered/Not Resolved]
  - Product use issue [Unknown]
  - Device defective [Unknown]
  - Rectal haemorrhage [Not Recovered/Not Resolved]
  - Product prescribing issue [Not Recovered/Not Resolved]
  - Incorrect dose administered [Unknown]
  - Dyspnoea [Not Recovered/Not Resolved]
  - Device failure [Unknown]
  - Cardiac disorder [Not Recovered/Not Resolved]
  - Device malfunction [Unknown]

NARRATIVE: CASE EVENT DATE: 20200211
